FAERS Safety Report 21363221 (Version 1)
Quarter: 2022Q3

REPORT INFORMATION
  Report Type: Spontaneous
  Country: US (occurrence: None)
  Receive Date: 20220921
  Receipt Date: 20220921
  Transmission Date: 20221027
  Serious: No
  Sender: FDA-Public Use
  Company Number: None

PATIENT
  Sex: Female

DRUGS (14)
  1. PULMOZYME [Suspect]
     Active Substance: DORNASE ALFA
     Indication: Infective pulmonary exacerbation of cystic fibrosis
     Dosage: OTHER QUANTITY : 2.5MG/2.5ML ;?FREQUENCY : DAILY;?
     Route: 055
     Dates: start: 20190103
  2. ADVAIR HFA 45-21 MCG INHALER [Concomitant]
  3. ALBUTEROL AER HFA [Concomitant]
  4. ALBUTEROL [Concomitant]
     Active Substance: ALBUTEROL
  5. CETIRIZINE 5 MG TABLET [Concomitant]
  6. COMPLETE FORM CHEW BUBBLEGUM [Concomitant]
  7. FLUTICASONE 50 MCG NASAL SPRAY [Concomitant]
  8. MONTELUKAST SODIUM [Concomitant]
     Active Substance: MONTELUKAST SODIUM
  9. NEBUSAL 3% 4 ML VIAL; POL VETH GL YC 3350 PWD 238GM [Concomitant]
  10. SOD CHL 3% 15 ML=1 NEB; SOD CHL 3% NE PH RON 4ML NEB [Concomitant]
  11. TRIKAFTA 50MG/25MG/37.5MG-75MG [Concomitant]
  12. VITAMIN A 10000 U (3000MCG) CAP [Concomitant]
  13. VITAMIN E 400 U (180MG) SOFTGEL [Concomitant]
  14. ZENPEP 10,000U CAP [Concomitant]

REACTIONS (1)
  - Polypectomy [None]
